FAERS Safety Report 4876578-0 (Version None)
Quarter: 2005Q4

REPORT INFORMATION
  Report Type: 
  Country: None (occurrence: None)
  Receive Date: 20051206
  Receipt Date: 20051019
  Transmission Date: 20060501
  Serious: No
  Sender: FDA-Public Use
  Company Number: USA0510111421

PATIENT
  Age: 31 Year
  Sex: Female

DRUGS (2)
  1. CYMBALTA [Suspect]
     Indication: DEPRESSION
     Dosage: 60 MG
     Dates: start: 20050901
  2. ORAL CONTRACEPTIVE [Concomitant]

REACTIONS (6)
  - CONSTIPATION [None]
  - DRY MOUTH [None]
  - HAEMORRHAGE [None]
  - INSOMNIA [None]
  - LIBIDO DECREASED [None]
  - METRORRHAGIA [None]
